FAERS Safety Report 7830099-1 (Version None)
Quarter: 2011Q4

REPORT INFORMATION
  Report Type: 
  Country: None (occurrence: None)
  Receive Date: 20111018
  Receipt Date: 20111004
  Transmission Date: 20120403
  Serious: Yes (Other)
  Sender: FDA-Public Use
  Company Number: 1000024583

PATIENT
  Age: 49 Year
  Sex: Male

DRUGS (3)
  1. WELLBUTRIN (BUPROPION HYDROCHLORIDE) (TABLETS) (BUPROPION HYDROCHLORID [Concomitant]
  2. ESCITALOPRAM [Suspect]
     Indication: DEPRESSION
     Dosage: DAILY DOSE NOT REPORTED, GRADUALLY INCREASED (1 IN 1 D),ORAL ; 30 MG (30 MG,1 IN 1 D),ORAL
     Route: 048
     Dates: start: 20080701
  3. ESCITALOPRAM [Suspect]
     Indication: DEPRESSION
     Dosage: DAILY DOSE NOT REPORTED, GRADUALLY INCREASED (1 IN 1 D),ORAL ; 30 MG (30 MG,1 IN 1 D),ORAL
     Route: 048
     Dates: start: 20090501

REACTIONS (2)
  - OVERDOSE [None]
  - PNEUMONIA [None]
